FAERS Safety Report 10032403 (Version 2)
Quarter: 2014Q2

REPORT INFORMATION
  Report Type: Spontaneous
  Country: IT (occurrence: None)
  Receive Date: 20140320
  Receipt Date: 20140403
  Transmission Date: 20141212
  Serious: Yes (Hospitalization)
  Sender: FDA-Public Use
  Company Number: FK201400863

PATIENT
  Age: 67 Year
  Sex: Male

DRUGS (6)
  1. OXALIPLATIN (MANUFACTURER UNKNOWN) (OXALIPLATIN) (OXALIPLATIN) [Suspect]
     Indication: RECTAL ADENOCARCINOMA
     Dosage: 70, MG/MQ, INTRAVENOUS (NOT OTHERWISE SPECIFIED)
     Route: 042
     Dates: start: 20131209, end: 20140303
  2. ERBITUX (CETUXIMAB) [Concomitant]
  3. IRINOTECAN HYDROCHLORIDE TRIHYDRATE (IRINOTECN HYDROCHLORIDE) [Concomitant]
  4. XELODA (CAPECITABINE) [Concomitant]
  5. BEVACIZUMAB (BEVACIZUMAB) [Concomitant]
  6. 5-FLUOROURACILE (FLUOROURACIL) [Concomitant]

REACTIONS (5)
  - Hyperhidrosis [None]
  - Hyperpyrexia [None]
  - Chills [None]
  - Pyrexia [None]
  - Blood pressure increased [None]
